FAERS Safety Report 24184627 (Version 1)
Quarter: 2024Q3

REPORT INFORMATION
  Report Type: Spontaneous
  Country: US (occurrence: US)
  Receive Date: 20240807
  Receipt Date: 20240807
  Transmission Date: 20241017
  Serious: Yes (Hospitalization, Other)
  Sender: MERCK
  Company Number: US-009507513-2408USA000434

PATIENT
  Age: 54 Year
  Sex: Female

DRUGS (1)
  1. KEYTRUDA [Suspect]
     Active Substance: PEMBROLIZUMAB
     Indication: Triple negative breast cancer
     Dosage: UNK
     Dates: start: 2023, end: 2023

REACTIONS (10)
  - Adverse drug reaction [Unknown]
  - Cardiac failure [Unknown]
  - Anaphylactic shock [Unknown]
  - Gallbladder disorder [Unknown]
  - Drainage [Unknown]
  - Swelling [Unknown]
  - Mental disorder [Unknown]
  - Depressed mood [Unknown]
  - Neuropathy peripheral [Unknown]
  - Treatment failure [Unknown]
